FAERS Safety Report 6631737-1 (Version None)
Quarter: 2010Q1

REPORT INFORMATION
  Report Type: 
  Country: None (occurrence: None)
  Receive Date: 20100312
  Receipt Date: 20100304
  Transmission Date: 20100710
  Serious: Yes (Other)
  Sender: FDA-Public Use
  Company Number: DE-NOVOPROD-289011

PATIENT
  Sex: Male
  Weight: 46.4 kg

DRUGS (1)
  1. NORDITROPIN [Suspect]
     Indication: SMALL FOR DATES BABY
     Dosage: UNK
     Route: 058
     Dates: start: 20010301

REACTIONS (1)
  - SKIN STRIAE [None]
